FAERS Safety Report 5521201-5 (Version None)
Quarter: 2007Q4

REPORT INFORMATION
  Report Type: 
  Country: None (occurrence: None)
  Receive Date: 20071119
  Receipt Date: 20071115
  Transmission Date: 20080405
  Serious: Yes (Hospitalization)
  Sender: FDA-Public Use
  Company Number: US-SHR-US-2007-025910

PATIENT
  Sex: Female

DRUGS (7)
  1. BETASERON [Suspect]
     Route: 058
     Dates: end: 20060501
  2. NEURONTIN [Concomitant]
  3. SYMMETREL [Concomitant]
     Dates: start: 19950101, end: 20070401
  4. SYMMETREL [Concomitant]
     Dates: start: 20070101
  5. PAXIL [Concomitant]
     Dates: start: 19950101, end: 20070401
  6. PAXIL [Concomitant]
     Dates: start: 20070101
  7. BACLOFEN [Concomitant]

REACTIONS (3)
  - AMNESIA [None]
  - MENTAL DISORDER [None]
  - MULTIPLE SCLEROSIS [None]
